FAERS Safety Report 4431474-8 (Version None)
Quarter: 2004Q3

REPORT INFORMATION
  Report Type: 
  Country: None (occurrence: None)
  Receive Date: 20040817
  Receipt Date: 20040802
  Transmission Date: 20050211
  Serious: Yes (Hospitalization)
  Sender: FDA-Public Use
  Company Number: 04P-083-0269245-00

PATIENT
  Sex: Female

DRUGS (1)
  1. HUMIRA [Suspect]
     Indication: RHEUMATOID ARTHRITIS
     Dates: start: 20030501, end: 20031201

REACTIONS (7)
  - BLADDER DISCOMFORT [None]
  - BLADDER NEOPLASM [None]
  - DYSURIA [None]
  - OVARIAN NEOPLASM [None]
  - POLLAKIURIA [None]
  - TUBERCULOSIS [None]
  - TUBERCULOSIS GASTROINTESTINAL [None]
